FAERS Safety Report 17041707 (Version 2)
Quarter: 2021Q1

REPORT INFORMATION
  Report Type: Other
  Country: GB (occurrence: GB)
  Receive Date: 20191118
  Receipt Date: 20210325
  Transmission Date: 20210419
  Serious: Yes (Other)
  Sender: FDA-Public Use
  Company Number: GB-ROCHE-2465497

PATIENT
  Sex: Female

DRUGS (2)
  1. ROACTEMRA [Suspect]
     Active Substance: TOCILIZUMAB
     Indication: RHEUMATOID ARTHRITIS
     Route: 058
     Dates: start: 201611
  2. METHOTREXATE. [Concomitant]
     Active Substance: METHOTREXATE

REACTIONS (7)
  - Ill-defined disorder [Unknown]
  - Peripheral swelling [Unknown]
  - Condition aggravated [Unknown]
  - Arthralgia [Unknown]
  - Lung disorder [Unknown]
  - Liver disorder [Unknown]
  - Bronchiectasis [Unknown]
